FAERS Safety Report 9205277 (Version 1)
Quarter: 2013Q2

REPORT INFORMATION
  Report Type: Spontaneous
  Country: US (occurrence: US)
  Receive Date: 20130402
  Receipt Date: 20130402
  Transmission Date: 20140414
  Serious: Yes (Other)
  Sender: FDA-Public Use
  Company Number: CHPA2013US005541

PATIENT
  Age: 86 Year
  Sex: Female

DRUGS (8)
  1. EXCEDRIN EXTRA STRENGTH [Suspect]
     Indication: HEADACHE
     Dosage: 1 DF, PRN MAX OF 3/DAY
     Route: 048
  2. EXCEDRIN EXTRA STRENGTH [Suspect]
     Indication: OCULAR DISCOMFORT
  3. TORSEMIDE [Concomitant]
     Indication: HYPERTENSION
     Dosage: 20 MG, QD ON  MWF
     Route: 048
  4. CENTRUM [Concomitant]
     Indication: VITAMIN SUPPLEMENTATION
     Dosage: 1 DF, QD
     Route: 048
  5. ZOCOR [Concomitant]
     Indication: BLOOD CHOLESTEROL INCREASED
     Dosage: 40 MG, QD, MWF
     Route: 048
  6. FERROUS SULPHATE [Concomitant]
     Indication: MINERAL SUPPLEMENTATION
     Dosage: 325 MG, QD
     Route: 048
  7. FISH OIL [Concomitant]
     Dosage: 2 DF, QD
     Route: 048
  8. POTASSIUM [Concomitant]
     Dosage: 1.5 DF, UNK
     Route: 048

REACTIONS (7)
  - Diplopia [Not Recovered/Not Resolved]
  - Therapeutic response unexpected [Not Recovered/Not Resolved]
  - Sleep disorder [Not Recovered/Not Resolved]
  - Sneezing [Not Recovered/Not Resolved]
  - Rhinorrhoea [Not Recovered/Not Resolved]
  - Off label use [Unknown]
  - Underdose [Unknown]
